FAERS Safety Report 18554227 (Version 2)
Quarter: 2020Q4

REPORT INFORMATION
  Report Type: Report from Study
  Country: US (occurrence: US)
  Receive Date: 20201127
  Receipt Date: 20201217
  Transmission Date: 20210114
  Serious: Yes (Hospitalization)
  Sender: FDA-Public Use
  Company Number: US-ALXN-A202017053

PATIENT
  Age: 58 Year
  Sex: Female
  Weight: 81 kg

DRUGS (12)
  1. ZOFRAN [Concomitant]
     Active Substance: ONDANSETRON HYDROCHLORIDE
     Indication: NAUSEA
     Dosage: 4 MG, PRN
     Route: 048
     Dates: start: 20181106
  2. RAVULIZUMAB. [Suspect]
     Active Substance: RAVULIZUMAB
     Indication: AMYOTROPHIC LATERAL SCLEROSIS
     Dosage: UNK
     Route: 042
     Dates: start: 20200331
  3. LASIX [Concomitant]
     Active Substance: FUROSEMIDE
     Indication: HYPERTENSION
     Dosage: 20 MG, QD
     Route: 048
     Dates: start: 20200408
  4. PANTOPRAZOLE [Concomitant]
     Active Substance: PANTOPRAZOLE
     Indication: GASTROOESOPHAGEAL REFLUX DISEASE
     Dosage: 40 MG, QD
     Route: 048
     Dates: start: 20190208
  5. BOTOX [Concomitant]
     Active Substance: ONABOTULINUMTOXINA
     Indication: MIGRAINE
     Dosage: 130 UT, PRN
     Route: 058
     Dates: start: 20200507
  6. LEXAPRO [Concomitant]
     Active Substance: ESCITALOPRAM OXALATE
     Indication: DEPRESSION
     Dosage: 20 MG, QD
     Route: 048
     Dates: start: 20190207
  7. GABAPENTIN. [Concomitant]
     Active Substance: GABAPENTIN
     Indication: MUSCLE SPASMS
     Dosage: 900 MG, TID
     Route: 048
     Dates: start: 20200106
  8. ELETRIPTAN. [Concomitant]
     Active Substance: ELETRIPTAN
     Indication: MIGRAINE
     Dosage: 40 MG, PRN
     Route: 048
     Dates: start: 20200123
  9. RAVULIZUMAB. [Suspect]
     Active Substance: RAVULIZUMAB
     Dosage: UNK
     Route: 042
     Dates: start: 20201001
  10. GABAPENTIN. [Concomitant]
     Active Substance: GABAPENTIN
     Indication: SALIVARY HYPERSECRETION
  11. IRBESARTAN. [Concomitant]
     Active Substance: IRBESARTAN
     Indication: HYPERTENSION
     Dosage: 300 MG, QD
     Route: 048
     Dates: start: 20190215
  12. TYLENOL [Concomitant]
     Active Substance: ACETAMINOPHEN
     Indication: HEADACHE
     Dosage: 500 MG, QID PRN
     Route: 048
     Dates: start: 20200331

REACTIONS (1)
  - Pneumonia aspiration [Recovered/Resolved]

NARRATIVE: CASE EVENT DATE: 20201117
